FAERS Safety Report 15158934 (Version 1)
Quarter: 2018Q3

REPORT INFORMATION
  Report Type: Spontaneous
  Country: NL (occurrence: NL)
  Receive Date: 20180718
  Receipt Date: 20180718
  Transmission Date: 20181010
  Serious: Yes (Hospitalization)
  Sender: FDA-Public Use
  Company Number: NL-MYLANLABS-2018M1051449

PATIENT
  Age: 61 Year
  Sex: Male

DRUGS (2)
  1. CLARITHROMYCIN. [Suspect]
     Active Substance: CLARITHROMYCIN
     Indication: ERYSIPELAS
     Dosage: 500 MG, BID (7 DAYS)
     Route: 065
  2. AMLODIPINE [Concomitant]
     Active Substance: AMLODIPINE BESYLATE
     Indication: HYPERTENSION
     Dosage: 10 MG, QID
     Route: 065

REACTIONS (5)
  - Euphoric mood [Recovered/Resolved]
  - Restlessness [Recovered/Resolved]
  - Mania [Recovered/Resolved]
  - Sleep disorder [Recovered/Resolved]
  - Delusion of grandeur [Recovered/Resolved]
